FAERS Safety Report 5719212-X (Version None)
Quarter: 2008Q2

REPORT INFORMATION
  Report Type: 
  Country: None (occurrence: None)
  Receive Date: 20080428
  Receipt Date: 20080416
  Transmission Date: 20081010
  Serious: Yes (Hospitalization)
  Sender: FDA-Public Use
  Company Number: FR-ELI_LILLY_AND_COMPANY-FR200804004012

PATIENT
  Sex: Female

DRUGS (3)
  1. ZYPREXA [Suspect]
     Indication: PSYCHOTIC DISORDER
     Dosage: 5 MG, 2/D
     Route: 048
     Dates: end: 20071008
  2. ST. JOHN'S WORT [Interacting]
     Indication: DEPRESSION
     Route: 048
     Dates: end: 20071023
  3. TRANXENE [Concomitant]
     Indication: ANXIETY
     Dosage: 20 MG, 2/D
     Route: 048
     Dates: start: 20071021, end: 20071023

REACTIONS (5)
  - ADRENAL CYST [None]
  - CHOLELITHIASIS [None]
  - DELUSION [None]
  - DRUG INTERACTION [None]
  - HEPATOCELLULAR INJURY [None]
